FAERS Safety Report 8911566 (Version 1)
Quarter: 2012Q4

REPORT INFORMATION
  Report Type: 
  Country: US (occurrence: US)
  Receive Date: 20121115
  Receipt Date: 20121115
  Transmission Date: 20130627
  Serious: No
  Sender: FDA-Public Use
  Company Number: US-PFIZER INC-2012284421

PATIENT
  Age: 66 Year
  Sex: Female
  Weight: 63.5 kg

DRUGS (8)
  1. GEODON [Suspect]
     Indication: BIPOLAR DISORDER
     Dosage: UNK, 1x/day
     Route: 048
     Dates: start: 2011, end: 2011
  2. BYSTOLIC [Concomitant]
     Dosage: 10 mg, UNK
  3. SIMVASTATIN [Concomitant]
     Dosage: 20 mg, UNK
  4. WELLBUTRIN XL [Concomitant]
     Dosage: 300 mg, UNK
  5. VIIBRYD [Concomitant]
     Dosage: 20 mg, UNK
  6. SEROQUEL [Concomitant]
     Dosage: 25 mg, UNK
  7. AMBIEN [Concomitant]
     Dosage: 10 mg, UNK
  8. RITALIN [Concomitant]
     Dosage: 10 mg, UNK

REACTIONS (4)
  - Movement disorder [Recovered/Resolved]
  - Restlessness [Recovered/Resolved]
  - Nausea [Recovered/Resolved]
  - Fatigue [Recovered/Resolved]
